FAERS Safety Report 10993203 (Version 2)
Quarter: 2015Q2

REPORT INFORMATION
  Report Type: Report from Study
  Country: PL (occurrence: PL)
  Receive Date: 20150407
  Receipt Date: 20150416
  Transmission Date: 20150821
  Serious: Yes (Death, Other)
  Sender: FDA-Public Use
  Company Number: PL-ROCHE-1560775

PATIENT
  Age: 50 Year
  Sex: Female

DRUGS (1)
  1. ALTEPLASE [Suspect]
     Active Substance: ALTEPLASE
     Indication: ISCHAEMIC STROKE
     Dosage: MAXIMUM DOSE 90 MG
     Route: 042
     Dates: start: 2010, end: 2010

REACTIONS (3)
  - Brain herniation [Unknown]
  - Brain oedema [Unknown]
  - Death [Fatal]

NARRATIVE: CASE EVENT DATE: 2010
